FAERS Safety Report 6536983-3 (Version None)
Quarter: 2010Q1

REPORT INFORMATION
  Report Type: 
  Country: None (occurrence: None)
  Receive Date: 20100107
  Receipt Date: 20100104
  Transmission Date: 20100710
  Serious: Yes (Hospitalization)
  Sender: FDA-Public Use
  Company Number: WAES 1001USA00040

PATIENT
  Age: 67 Year
  Sex: Male
  Weight: 108.8633 kg

DRUGS (5)
  1. DECADRON [Suspect]
     Dosage: PO
     Route: 048
  2. PANITUMUMAB UNK [Suspect]
     Indication: NEOPLASM MALIGNANT
     Dates: start: 20091026
  3. FLUOROURACIL [Suspect]
     Dosage: IV
     Route: 042
     Dates: start: 20091026
  4. THERAPEUTIC RADIOPHARMACEUTICAL (UNSPECIFIED) UNK [Suspect]
     Dates: start: 20091026
  5. DOXYCYCLINE UNK [Suspect]

REACTIONS (7)
  - DEHYDRATION [None]
  - FATIGUE [None]
  - LYMPHOPENIA [None]
  - NAUSEA [None]
  - OESOPHAGITIS [None]
  - ULCER [None]
  - VOMITING [None]
